FAERS Safety Report 8288704-4 (Version None)
Quarter: 2012Q2

REPORT INFORMATION
  Report Type: 
  Country: None (occurrence: None)
  Receive Date: 20120417
  Receipt Date: 20120405
  Transmission Date: 20120825
  Serious: Yes (Hospitalization)
  Sender: FDA-Public Use
  Company Number: US-BIOGENIDEC-2012BI008131

PATIENT
  Age: 47 Year
  Sex: Female

DRUGS (1)
  1. TYSABRI [Suspect]
     Indication: MULTIPLE SCLEROSIS
     Route: 042
     Dates: start: 20120207, end: 20120307

REACTIONS (4)
  - FALL [None]
  - PARALYSIS [None]
  - GAIT DISTURBANCE [None]
  - URINARY TRACT INFECTION [None]
